FAERS Safety Report 9948358 (Version 1)
Quarter: 2014Q1

REPORT INFORMATION
  Report Type: Spontaneous
  Country: US (occurrence: None)
  Receive Date: 20140122
  Receipt Date: 20140122
  Transmission Date: 20141002
  Serious: Yes (Other)
  Sender: FDA-Public Use
  Company Number: AP356-00180-SPO-US

PATIENT
  Age: 70 Year
  Sex: Female
  Weight: 81.19 kg

DRUGS (2)
  1. BELVIQ (LORCASERIN HYDROCHLORIDE) [Suspect]
     Indication: WEIGHT CONTROL
     Dosage: 20 MG , 2 IN 1 D, ORAL  9/23/2013 - ONGOING
     Route: 048
     Dates: start: 20130923
  2. SIMVASTATIN (SIMVASTATIN) [Concomitant]

REACTIONS (2)
  - Weight increased [None]
  - Hunger [None]
